FAERS Safety Report 25686388 (Version 3)
Quarter: 2025Q3

REPORT INFORMATION
  Report Type: Spontaneous
  Country: CN (occurrence: CN)
  Receive Date: 20250815
  Receipt Date: 20250930
  Transmission Date: 20251020
  Serious: Yes (Other)
  Sender: PFIZER
  Company Number: CN-PFIZER INC-PV202500097762

PATIENT
  Age: 52 Year
  Sex: Male

DRUGS (3)
  1. METHYLPREDNISOLONE [Suspect]
     Active Substance: METHYLPREDNISOLONE
     Indication: Nephrotic syndrome
     Dosage: 48 MG, DAILY (IN THE FIRST MONTH)
     Route: 048
     Dates: start: 202310, end: 202311
  2. METHYLPREDNISOLONE [Suspect]
     Active Substance: METHYLPREDNISOLONE
     Indication: Glomerulonephritis membranoproliferative
     Dosage: 44 MG, DAILY (IN THE SECOND MONTH)
     Route: 048
     Dates: start: 202311, end: 202312
  3. METHYLPREDNISOLONE [Suspect]
     Active Substance: METHYLPREDNISOLONE
     Indication: Glomerulonephritis membranous
     Dosage: MAINTAINED AT 40 MG DAILY FROM THE THIRD MONTH TO THE
     Route: 048
     Dates: start: 202312

REACTIONS (4)
  - Pneumonia cryptococcal [Recovering/Resolving]
  - Pneumocystis jirovecii pneumonia [Recovering/Resolving]
  - Steroid diabetes [Unknown]
  - Off label use [Unknown]
